FAERS Safety Report 18019208 (Version 1)
Quarter: 2020Q3

REPORT INFORMATION
  Report Type: Spontaneous
  Country: PT (occurrence: PT)
  Receive Date: 20200714
  Receipt Date: 20200714
  Transmission Date: 20201103
  Serious: Yes (Other)
  Sender: FDA-Public Use
  Company Number: NVSC2020PT196042

PATIENT
  Age: 38 Year
  Sex: Female

DRUGS (6)
  1. AMOXICILLIN. [Suspect]
     Active Substance: AMOXICILLIN
     Indication: HELICOBACTER INFECTION
     Dosage: 1000 MG
     Route: 065
     Dates: start: 2018
  2. RAMIPRIL. [Suspect]
     Active Substance: RAMIPRIL
     Indication: PRODUCT USED FOR UNKNOWN INDICATION
     Dosage: 2.5 MG, QD
     Route: 065
  3. LEVOFLOXACIN. [Concomitant]
     Active Substance: LEVOFLOXACIN
     Indication: HELICOBACTER INFECTION
     Dosage: 500 MG
     Route: 065
     Dates: start: 2018
  4. SERTRALINE [Suspect]
     Active Substance: SERTRALINE HYDROCHLORIDE
     Indication: PRODUCT USED FOR UNKNOWN INDICATION
     Dosage: 50 MG, QD
     Route: 065
  5. OMEPRAZOLE. [Suspect]
     Active Substance: OMEPRAZOLE
     Indication: HELICOBACTER INFECTION
     Dosage: 20 MG, QD
     Route: 065
     Dates: start: 201802
  6. OMEPRAZOLE. [Suspect]
     Active Substance: OMEPRAZOLE
     Indication: OESOPHAGEAL DISORDER

REACTIONS (10)
  - Chronic gastritis [Recovering/Resolving]
  - Hiatus hernia [Not Recovered/Not Resolved]
  - Oesophageal papilloma [Unknown]
  - Papilloma [Unknown]
  - Abdominal pain upper [Recovering/Resolving]
  - Gastrointestinal polyp [Unknown]
  - Helicobacter infection [Unknown]
  - Infarction [Recovering/Resolving]
  - Dyspepsia [Recovering/Resolving]
  - Gastrointestinal polyp [Recovering/Resolving]

NARRATIVE: CASE EVENT DATE: 2018
